FAERS Safety Report 16878394 (Version 1)
Quarter: 2019Q4

REPORT INFORMATION
  Report Type: Spontaneous
  Country: US (occurrence: US)
  Receive Date: 20191002
  Receipt Date: 20191002
  Transmission Date: 20200122
  Serious: Yes (Hospitalization)
  Sender: FDA-Public Use
  Company Number: US-CHURCH + DWIGHT CO., INC.-2075212

PATIENT
  Age: 25 Year
  Sex: Female

DRUGS (1)
  1. ORAJEL MAXIMUM STRENGTH (BENZOCAINE) [Suspect]
     Active Substance: BENZOCAINE
     Indication: TOOTHACHE
     Route: 004

REACTIONS (4)
  - Fatigue [Recovered/Resolved]
  - Dyspnoea [Recovered/Resolved]
  - Cyanosis [Recovered/Resolved]
  - Muscular weakness [Recovered/Resolved]
